FAERS Safety Report 6992031-2 (Version None)
Quarter: 2010Q3

REPORT INFORMATION
  Report Type: 
  Country: None (occurrence: None)
  Receive Date: 20100917
  Receipt Date: 20100909
  Transmission Date: 20110219
  Serious: Yes (Hospitalization, Other)
  Sender: FDA-Public Use
  Company Number: US-PFIZER INC-2010114936

PATIENT
  Sex: Male
  Weight: 131.7 kg

DRUGS (11)
  1. LIPITOR [Suspect]
     Indication: BLOOD CHOLESTEROL INCREASED
     Dosage: UNK
     Route: 048
     Dates: start: 19930101, end: 20100101
  2. NORVASC [Suspect]
     Indication: MYOCARDIAL INFARCTION
     Dosage: 2.5 MG, 2X/DAY
     Route: 048
     Dates: start: 19930101, end: 20100101
  3. NITROSTAT [Suspect]
     Indication: ANGINA PECTORIS
     Dosage: 0.4 MG, 2X/DAY
     Route: 048
     Dates: start: 19930101, end: 20100101
  4. NITROSTAT [Suspect]
     Indication: CARDIAC DISORDER
  5. NITROGLYCERIN [Suspect]
     Indication: ANGINA PECTORIS
     Dosage: 0.4 MG, 1X/DAY
     Route: 048
     Dates: start: 20100101
  6. NITROGLYCERIN [Suspect]
     Indication: CARDIAC DISORDER
  7. AMLODIPINE BESYLATE [Suspect]
     Indication: MYOCARDIAL INFARCTION
     Dosage: 5 MG, 1X/DAY
     Route: 048
     Dates: start: 20100101
  8. CARVEDILOL [Concomitant]
     Dosage: 25 MG, UNK
  9. LISINOPRIL [Concomitant]
     Dosage: 10 MG, UNK
  10. CIPROFLOXACIN [Concomitant]
     Dosage: 500 MG, UNK
  11. ISOSORBIDE [Concomitant]
     Dosage: 30 MG, UNK

REACTIONS (8)
  - ANGINA PECTORIS [None]
  - BLOOD CHOLESTEROL INCREASED [None]
  - BLOOD PRESSURE FLUCTUATION [None]
  - CARDIAC DISORDER [None]
  - FLUID RETENTION [None]
  - HYPERHIDROSIS [None]
  - MYOCARDIAL INFARCTION [None]
  - WEIGHT INCREASED [None]
